FAERS Safety Report 5804647-7 (Version None)
Quarter: 2008Q3

REPORT INFORMATION
  Report Type: 
  Country: None (occurrence: None)
  Receive Date: 20080709
  Receipt Date: 20080630
  Transmission Date: 20090109
  Serious: Yes (Death)
  Sender: FDA-Public Use
  Company Number: IN-ELI_LILLY_AND_COMPANY-IN200807000124

PATIENT
  Sex: Female

DRUGS (1)
  1. XIGRIS [Suspect]
     Indication: PNEUMONIA
     Dosage: 24 MCG/KG/HR
     Route: 042
     Dates: start: 20080629

REACTIONS (1)
  - DEATH [None]
